FAERS Safety Report 8791905 (Version 2)
Quarter: 2012Q4

REPORT INFORMATION
  Report Type: 
  Country: US (occurrence: US)
  Receive Date: 20120918
  Receipt Date: 20121217
  Transmission Date: 20130627
  Serious: Yes (Other)
  Sender: FDA-Public Use
  Company Number: US-BAYER-2012-096497

PATIENT
  Age: 21 Year
  Sex: Female

DRUGS (6)
  1. YASMIN [Suspect]
     Indication: BIRTH CONTROL
     Dosage: UNK
     Dates: start: 200602, end: 200907
  2. YASMIN [Suspect]
     Indication: CONTRACEPTION
  3. YASMIN [Suspect]
     Indication: ACNE
  4. YAZ [Suspect]
     Indication: CONTRACEPTION
     Dosage: UNK
     Dates: start: 200907, end: 20090911
  5. YAZ [Suspect]
     Indication: ACNE
  6. PROAIR HFA [Concomitant]
     Indication: ASTHMA
     Dosage: Inhale two puffs 4 times daily as needed
     Route: 045
     Dates: start: 1996

REACTIONS (8)
  - Deep vein thrombosis [None]
  - Injury [None]
  - Pain [None]
  - Anxiety [None]
  - Anhedonia [None]
  - Psychological trauma [None]
  - Fear [None]
  - Pain in extremity [None]
